FAERS Safety Report 23205712 (Version 2)
Quarter: 2023Q4

REPORT INFORMATION
  Report Type: Spontaneous
  Country: US (occurrence: US)
  Receive Date: 20231120
  Receipt Date: 20231212
  Transmission Date: 20240110
  Serious: No
  Sender: FDA-Public Use
  Company Number: US-JNJFOC-20231133639

PATIENT
  Age: 46 Year
  Sex: Female
  Weight: 115.2 kg

DRUGS (20)
  1. OPSUMIT [Suspect]
     Active Substance: MACITENTAN
     Indication: Pulmonary arterial hypertension
     Route: 048
  2. TREPROSTINIL [Suspect]
     Active Substance: TREPROSTINIL
     Indication: Pulmonary arterial hypertension
     Route: 055
  3. TREPROSTINIL [Suspect]
     Active Substance: TREPROSTINIL
     Route: 055
  4. TREPROSTINIL [Suspect]
     Active Substance: TREPROSTINIL
     Route: 055
  5. TREPROSTINIL [Suspect]
     Active Substance: TREPROSTINIL
     Route: 055
     Dates: start: 20220311
  6. TYVASO [Suspect]
     Active Substance: TREPROSTINIL
     Indication: Pulmonary arterial hypertension
     Route: 065
  7. UNSPECIFIED INGREDIENT [Suspect]
     Active Substance: UNSPECIFIED INGREDIENT
     Indication: Product used for unknown indication
     Route: 065
     Dates: start: 20231129
  8. TOZINAMERAN [Concomitant]
     Active Substance: TOZINAMERAN
  9. TIRZEPATIDE [Concomitant]
     Active Substance: TIRZEPATIDE
  10. FUROSEMIDE [Concomitant]
     Active Substance: FUROSEMIDE
  11. SPIRONOLACTONE [Concomitant]
     Active Substance: SPIRONOLACTONE
  12. COLCHICINE [Concomitant]
     Active Substance: COLCHICINE
  13. OXYGEN [Concomitant]
     Active Substance: OXYGEN
  14. FOLIC ACID [Concomitant]
     Active Substance: FOLIC ACID
  15. VITAMINS [Concomitant]
     Active Substance: VITAMINS
     Route: 048
  16. ALBUTEROL SULFATE [Concomitant]
     Active Substance: ALBUTEROL SULFATE
  17. POTASSIUM CHLORIDE [Concomitant]
     Active Substance: POTASSIUM CHLORIDE
  18. DIPHENHYDRAMINE HYDROCHLORIDE [Concomitant]
     Active Substance: DIPHENHYDRAMINE HYDROCHLORIDE
  19. CHOLECALCIFEROL [Concomitant]
     Active Substance: CHOLECALCIFEROL
  20. DICLOFENAC SODIUM [Concomitant]
     Active Substance: DICLOFENAC\DICLOFENAC SODIUM

REACTIONS (4)
  - Carpal tunnel syndrome [Not Recovered/Not Resolved]
  - Feeling abnormal [Unknown]
  - Product dose omission issue [Unknown]
  - Pain [Unknown]
